FAERS Safety Report 23953200 (Version 3)
Quarter: 2024Q3

REPORT INFORMATION
  Report Type: Spontaneous
  Country: CZ (occurrence: CZ)
  Receive Date: 20240608
  Receipt Date: 20240822
  Transmission Date: 20241017
  Serious: Yes (Other)
  Sender: TEVA
  Company Number: CZ-TEVA-VS-3206454

PATIENT
  Age: 41 Year
  Sex: Female

DRUGS (11)
  1. ETOPOSIDE [Suspect]
     Active Substance: ETOPOSIDE
     Indication: Chemotherapy
     Route: 065
     Dates: start: 20230325
  2. ETOPOSIDE [Suspect]
     Active Substance: ETOPOSIDE
     Indication: Chemotherapy
     Dosage: CHEPA REGIMEN
     Route: 065
     Dates: start: 20230330, end: 20230724
  3. ETOPOSIDE [Suspect]
     Active Substance: ETOPOSIDE
     Indication: Chemotherapy
     Dosage: HIGH-DOSE BEAM CHEMOTHERAPY
     Route: 065
     Dates: start: 20230906
  4. DOXORUBICIN [Suspect]
     Active Substance: DOXORUBICIN
     Indication: Chemotherapy
     Route: 065
     Dates: start: 20230330, end: 20230724
  5. FILGRASTIM [Suspect]
     Active Substance: FILGRASTIM
     Indication: Chemotherapy
     Dosage: 6 CYCLES OF CHEPA
     Route: 065
     Dates: end: 20230724
  6. CYCLOPHOSPHAMIDE [Suspect]
     Active Substance: CYCLOPHOSPHAMIDE
     Indication: Chemotherapy
     Dosage: CHEPA REGIMEN
     Route: 065
     Dates: start: 20230330, end: 20230724
  7. BRENTUXIMAB VEDOTIN [Suspect]
     Active Substance: BRENTUXIMAB VEDOTIN
     Indication: Chemotherapy
     Dosage: CHEPA REGIMEN
     Route: 065
     Dates: start: 20230330, end: 20230724
  8. PREDNISONE [Suspect]
     Active Substance: PREDNISONE
     Indication: Chemotherapy
     Dosage: CHEPA REGIMEN P.O
     Route: 048
     Dates: start: 20230330, end: 20230724
  9. CARMUSTINE [Suspect]
     Active Substance: CARMUSTINE
     Indication: Chemotherapy
     Dosage: HIGH-DOSE BEAM
     Route: 065
     Dates: start: 20230906
  10. CYTARABINE [Suspect]
     Active Substance: CYTARABINE
     Indication: Chemotherapy
     Dosage: HIGH-DOSE BEAM
     Route: 065
     Dates: start: 20230906
  11. MELPHALAN [Suspect]
     Active Substance: MELPHALAN
     Indication: Chemotherapy
     Dosage: HIGH-DOSE BEAM
     Route: 065
     Dates: start: 20230906

REACTIONS (2)
  - Peripheral sensorimotor neuropathy [Unknown]
  - Stomatitis [Unknown]
